FAERS Safety Report 23702418 (Version 1)
Quarter: 2024Q2

REPORT INFORMATION
  Report Type: Report from Study
  Country: CO (occurrence: CO)
  Receive Date: 20240403
  Receipt Date: 20240403
  Transmission Date: 20240716
  Serious: Yes (Life-Threatening, Other)
  Sender: FDA-Public Use
  Company Number: CO-002147023-NVSC2024CO070646

PATIENT
  Sex: Female
  Weight: 68 kg

DRUGS (1)
  1. AFINITOR [Suspect]
     Active Substance: EVEROLIMUS
     Indication: Breast cancer
     Dosage: 10 MG, QD
     Route: 048
     Dates: start: 20240213

REACTIONS (16)
  - Near death experience [Unknown]
  - Oral discomfort [Unknown]
  - Syncope [Unknown]
  - Thermal burn [Unknown]
  - Acne [Unknown]
  - Eye swelling [Unknown]
  - Mouth swelling [Unknown]
  - Pharyngeal swelling [Unknown]
  - Oral disorder [Unknown]
  - Dysgeusia [Unknown]
  - Eating disorder [Unknown]
  - Asthenia [Unknown]
  - Fall [Unknown]
  - Cerebral disorder [Unknown]
  - Weight decreased [Unknown]
  - Chest pain [Unknown]
